FAERS Safety Report 9292976 (Version 2)
Quarter: 2013Q2

REPORT INFORMATION
  Report Type: Spontaneous
  Country: US (occurrence: None)
  Receive Date: 20130513
  Receipt Date: 20130522
  Transmission Date: 20140414
  Serious: Yes (Hospitalization)
  Sender: FDA-Public Use
  Company Number: 2013-0750

PATIENT
  Age: 71 Year
  Sex: Male
  Weight: 70.9 kg

DRUGS (2)
  1. CARFILZOMIB [Suspect]
     Indication: PLASMA CELL MYELOMA
     Dates: start: 20130122, end: 20130419
  2. POMALIDOMIDE (POMALIDOMIDE) (POMALIDOMIDE (POMALIDOMIDE)) [Concomitant]

REACTIONS (2)
  - Plasma cell myeloma [None]
  - Influenza [None]
